FAERS Safety Report 4838604-4 (Version None)
Quarter: 2005Q4

REPORT INFORMATION
  Report Type: 
  Country: None (occurrence: None)
  Receive Date: 20051123
  Receipt Date: 20051123
  Transmission Date: 20060501
  Serious: Yes (Disabling)
  Sender: FDA-Public Use
  Company Number: None

PATIENT
  Sex: Male
  Weight: 70.3075 kg

DRUGS (1)
  1. PROPECIA [Suspect]
     Indication: ALOPECIA
     Dosage: 1 PILL   DAILY  PO
     Route: 048
     Dates: start: 19990101, end: 20050315

REACTIONS (4)
  - ABASIA [None]
  - DYSSTASIA [None]
  - MUSCLE STRAIN [None]
  - MUSCLE TIGHTNESS [None]
